FAERS Safety Report 11681265 (Version 2)
Quarter: 2015Q4

REPORT INFORMATION
  Report Type: Spontaneous
  Country: US (occurrence: US)
  Receive Date: 20151027
  Receipt Date: 20151104
  Transmission Date: 20160304
  Serious: No
  Sender: FDA-Public Use
  Company Number: US-ELI_LILLY_AND_COMPANY-US201008003299

PATIENT
  Sex: Female

DRUGS (2)
  1. FORTEO [Suspect]
     Active Substance: TERIPARATIDE
     Dosage: 20 UG, DAILY (1/D)
  2. FORTEO [Suspect]
     Active Substance: TERIPARATIDE
     Indication: OSTEOPOROSIS
     Dosage: 20 UG, DAILY (1/D)

REACTIONS (15)
  - Heart rate irregular [Recovered/Resolved]
  - Discomfort [Recovered/Resolved]
  - Bronchiectasis [Unknown]
  - Pain [Recovered/Resolved]
  - Asthenia [Unknown]
  - Dizziness [Recovered/Resolved]
  - Myalgia [Unknown]
  - Medication error [Unknown]
  - Palpitations [Unknown]
  - Feeling abnormal [Recovered/Resolved]
  - Chest discomfort [Recovered/Resolved]
  - Depression [Unknown]
  - Incorrect product storage [Unknown]
  - Dyspnoea [Unknown]
  - Dizziness [Unknown]
